FAERS Safety Report 10735709 (Version 2)
Quarter: 2015Q1

REPORT INFORMATION
  Report Type: Spontaneous
  Country: PL (occurrence: PL)
  Receive Date: 20150126
  Receipt Date: 20150309
  Transmission Date: 20150721
  Serious: Yes (Death, Other)
  Sender: FDA-Public Use
  Company Number: PL-ROCHE-1524127

PATIENT
  Sex: Female

DRUGS (5)
  1. OXALIPLATIN. [Suspect]
     Active Substance: OXALIPLATIN
     Indication: COLON CANCER METASTATIC
     Route: 065
  2. PANITUMUMAB [Suspect]
     Active Substance: PANITUMUMAB
     Indication: COLON CANCER METASTATIC
     Route: 065
  3. IRINOTECAN [Suspect]
     Active Substance: IRINOTECAN
     Indication: COLON CANCER METASTATIC
     Route: 065
  4. XELODA [Suspect]
     Active Substance: CAPECITABINE
     Indication: COLON CANCER METASTATIC
     Route: 065
  5. AVASTIN [Suspect]
     Active Substance: BEVACIZUMAB
     Indication: COLON CANCER METASTATIC
     Route: 065

REACTIONS (11)
  - Polyneuropathy [Unknown]
  - Abdominal pain [Unknown]
  - Disease recurrence [Unknown]
  - Nausea [Unknown]
  - Ovarian epithelial cancer [Unknown]
  - Diarrhoea [Unknown]
  - Disease progression [Unknown]
  - Asthenia [Unknown]
  - Vomiting [Unknown]
  - Jaundice [Unknown]
  - Death [Fatal]

NARRATIVE: CASE EVENT DATE: 201405
